FAERS Safety Report 9847249 (Version 1)
Quarter: 2014Q1

REPORT INFORMATION
  Report Type: Spontaneous
  Country: US (occurrence: US)
  Receive Date: 20140127
  Receipt Date: 20140127
  Transmission Date: 20141002
  Serious: Yes (Hospitalization)
  Sender: FDA-Public Use
  Company Number: US-DYAX CORP.-2012DX000262

PATIENT
  Age: 48 Year
  Sex: Female
  Weight: 103.97 kg

DRUGS (7)
  1. KALBITOR [Suspect]
     Indication: HEREDITARY ANGIOEDEMA
     Route: 058
     Dates: start: 20121128
  2. FIRAZYR [Concomitant]
     Indication: HEREDITARY ANGIOEDEMA
     Dates: start: 20120123
  3. CINRYZE [Concomitant]
     Indication: HEREDITARY ANGIOEDEMA
     Dosage: DAILY DOSE: 1000 UNITS,
     Dates: start: 20110719
  4. ATENOLOL [Concomitant]
     Indication: BLOOD PRESSURE ABNORMAL
  5. PROZAC [Concomitant]
     Indication: PRODUCT USED FOR UNKNOWN INDICATION
     Dates: start: 20120701
  6. MIRAPEX [Concomitant]
     Indication: RESTLESS LEGS SYNDROME
     Dates: start: 2007
  7. METFORMIN [Concomitant]
     Indication: DIABETES MELLITUS
     Dates: start: 2007

REACTIONS (1)
  - Therapeutic response decreased [Unknown]
